APPROVED DRUG PRODUCT: GABAPENTIN
Active Ingredient: GABAPENTIN
Strength: 600MG
Dosage Form/Route: TABLET;ORAL
Application: A078782 | Product #001
Applicant: HIKMA PHARMACEUTICALS
Approved: Jul 21, 2011 | RLD: No | RS: No | Type: DISCN